FAERS Safety Report 6971108-1 (Version None)
Quarter: 2010Q3

REPORT INFORMATION
  Report Type: 
  Country: None (occurrence: None)
  Receive Date: 20100908
  Receipt Date: 20100827
  Transmission Date: 20110219
  Serious: Yes (Other)
  Sender: FDA-Public Use
  Company Number: US-PFIZER INC-2010108377

PATIENT

DRUGS (1)
  1. XALATAN [Suspect]
     Dosage: ONE DROP IN MORNING AND ONE DROP AT NIGHT
     Route: 047

REACTIONS (3)
  - EYE INFLAMMATION [None]
  - INTRAOCULAR PRESSURE INCREASED [None]
  - OCULAR HYPERAEMIA [None]
